FAERS Safety Report 8755984 (Version 2)
Quarter: 2012Q4

REPORT INFORMATION
  Report Type: Spontaneous
  Country: US (occurrence: None)
  Receive Date: 20120814
  Receipt Date: 20120824
  Transmission Date: 20130627
  Serious: Yes (Hospitalization)
  Sender: FDA-Public Use
  Company Number: 2012-3618

PATIENT
  Age: 73 Year
  Sex: Female
  Weight: 124 kg

DRUGS (4)
  1. SOMATULINE DEPOT [Suspect]
     Indication: ACROMEGALY
     Route: 050
     Dates: start: 20100713
  2. BYSTOLIC (NEBIVOLOL) [Concomitant]
  3. SPIRONOLACTONE (SPIRONOLACTONE) [Concomitant]
  4. HYDROCHLOROTHIAZIDE (HYDROCHLOROTHIAZIDE) [Concomitant]

REACTIONS (3)
  - Colon cancer [None]
  - Pulmonary thrombosis [None]
  - Incision site infection [None]
